FAERS Safety Report 10377850 (Version 2)
Quarter: 2014Q3

REPORT INFORMATION
  Report Type: Report from Study
  Country: AU (occurrence: AU)
  Receive Date: 20140812
  Receipt Date: 20140908
  Transmission Date: 20150326
  Serious: Yes (Death, Other)
  Sender: FDA-Public Use
  Company Number: PHHY2014AU098695

PATIENT
  Age: 67 Year
  Sex: Female

DRUGS (7)
  1. TEGRETOL [Concomitant]
     Active Substance: CARBAMAZEPINE
     Dosage: 100 MG, BID
  2. MADOPAR [Concomitant]
     Active Substance: BENSERAZIDE HYDROCHLORIDE\LEVODOPA
     Dosage: 125 MG, UNK
  3. CLOZARIL [Suspect]
     Active Substance: CLOZAPINE
     Indication: SCHIZOPHRENIA
     Dosage: 100 UKN
     Route: 048
     Dates: start: 20110907
  4. MADOPARK [Concomitant]
     Dosage: 1 DF NOCTE
  5. RIVOTRIL [Concomitant]
     Active Substance: CLONAZEPAM
     Dosage: 0.5 MG NOCTE
  6. KEPPRA [Concomitant]
     Active Substance: LEVETIRACETAM
     Dosage: 200 MG, BID
  7. EZETAL [Concomitant]
     Dosage: 10 MG, QD

REACTIONS (2)
  - Cardiac disorder [Unknown]
  - Cardiac arrest [Fatal]

NARRATIVE: CASE EVENT DATE: 20140722
